FAERS Safety Report 7288325-6 (Version None)
Quarter: 2011Q1

REPORT INFORMATION
  Report Type: 
  Country: None (occurrence: None)
  Receive Date: 20110208
  Receipt Date: 20110208
  Transmission Date: 20110831
  Serious: Yes (Hospitalization)
  Sender: FDA-Public Use
  Company Number: None

PATIENT
  Age: 77 Year
  Sex: Female
  Weight: 57.6068 kg

DRUGS (1)
  1. DILANTIN [Suspect]

REACTIONS (8)
  - CHOLECYSTECTOMY [None]
  - ATRIAL FIBRILLATION [None]
  - BLOOD PRESSURE FLUCTUATION [None]
  - TOXICITY TO VARIOUS AGENTS [None]
  - PANCREATITIS [None]
  - ATRIAL FLUTTER [None]
  - CHOLECYSTITIS ACUTE [None]
  - BLOOD PRESSURE INCREASED [None]
